FAERS Safety Report 6154146-0 (Version None)
Quarter: 2009Q2

REPORT INFORMATION
  Report Type: 
  Country: None (occurrence: None)
  Receive Date: 20090414
  Receipt Date: 20070515
  Transmission Date: 20091009
  Serious: Yes (Hospitalization, Other)
  Sender: FDA-Public Use
  Company Number: US-ASTRAZENECA-2006UW08249

PATIENT
  Age: 646 Month
  Sex: Female
  Weight: 64 kg

DRUGS (22)
  1. SEROQUEL [Suspect]
     Indication: SCHIZOPHRENIA
     Route: 048
     Dates: start: 20040801, end: 20050101
  2. SEROQUEL [Suspect]
     Indication: BIPOLAR DISORDER
     Route: 048
     Dates: start: 20040801, end: 20050101
  3. SEROQUEL [Suspect]
     Indication: DEPRESSION
     Route: 048
     Dates: start: 20040801, end: 20050101
  4. SEROQUEL [Suspect]
     Dosage: 50MG-200MG
     Route: 048
  5. SEROQUEL [Suspect]
     Dosage: 50MG-200MG
     Route: 048
  6. SEROQUEL [Suspect]
     Dosage: 50MG-200MG
     Route: 048
  7. ABILIFY [Concomitant]
     Dates: start: 20040801, end: 20050101
  8. GEODON [Concomitant]
     Dates: start: 20030601, end: 20070101
  9. HALDOL [Concomitant]
     Dates: start: 19850101, end: 19990101
  10. RISPERDAL [Concomitant]
     Dates: start: 20070101
  11. ZYPREXA [Concomitant]
     Dates: start: 20001201, end: 20050101
  12. ZOLOFT [Concomitant]
  13. SYNTHROID [Concomitant]
  14. GLUCOPHAGE [Concomitant]
  15. TIAZAC [Concomitant]
  16. LISINOPRIL [Concomitant]
  17. AMBIEN [Concomitant]
  18. WELLBUTRIN [Concomitant]
  19. LEVBID [Concomitant]
  20. COLACE [Concomitant]
  21. TUMS [Concomitant]
  22. COGENTIN [Concomitant]

REACTIONS (12)
  - ANDROGENETIC ALOPECIA [None]
  - BIPOLAR DISORDER [None]
  - DELUSION [None]
  - HALLUCINATION, AUDITORY [None]
  - HIP FRACTURE [None]
  - HYPOTENSION [None]
  - INSOMNIA [None]
  - MOOD SWINGS [None]
  - SCHIZOAFFECTIVE DISORDER [None]
  - SUICIDAL IDEATION [None]
  - TYPE 2 DIABETES MELLITUS [None]
  - URINARY TRACT INFECTION [None]
